FAERS Safety Report 5249799-5 (Version None)
Quarter: 2007Q1

REPORT INFORMATION
  Report Type: 
  Country: None (occurrence: None)
  Receive Date: 20070228
  Receipt Date: 20070219
  Transmission Date: 20070707
  Serious: Yes (Hospitalization)
  Sender: FDA-Public Use
  Company Number: 2007AP01188

PATIENT
  Age: 25992 Day
  Sex: Female
  Weight: 54.5 kg

DRUGS (2)
  1. ARIMIDEX [Suspect]
     Indication: BREAST CANCER
     Route: 048
     Dates: start: 20060825, end: 20070205
  2. RADIOTHERAPY [Concomitant]
     Dates: start: 20060831, end: 20061005

REACTIONS (1)
  - CRYPTOGENIC ORGANISING PNEUMONIA [None]
